FAERS Safety Report 12157467 (Version 5)
Quarter: 2016Q2

REPORT INFORMATION
  Report Type: Report from Study
  Country: BR (occurrence: BR)
  Receive Date: 20160308
  Receipt Date: 20160513
  Transmission Date: 20160815
  Serious: Yes (Other)
  Sender: FDA-Public Use
  Company Number: BR-ROCHE-1720897

PATIENT
  Age: 59 Year
  Sex: Female
  Weight: 58 kg

DRUGS (2)
  1. BACLOFENO [Concomitant]
     Indication: PAIN
  2. ACTEMRA [Suspect]
     Active Substance: TOCILIZUMAB
     Indication: RHEUMATOID ARTHRITIS
     Route: 042
     Dates: start: 20141201, end: 20160211

REACTIONS (8)
  - Fluid retention [Recovered/Resolved]
  - Oropharyngeal candidiasis [Recovered/Resolved]
  - Laryngeal oedema [Recovered/Resolved]
  - Therapy responder [Unknown]
  - Lung infection [Recovered/Resolved]
  - Hypersensitivity [Recovered/Resolved]
  - Oropharyngeal pain [Recovered/Resolved]
  - Immunodeficiency [Recovered/Resolved]

NARRATIVE: CASE EVENT DATE: 201603
